FAERS Safety Report 21903820 (Version 3)
Quarter: 2023Q1

REPORT INFORMATION
  Report Type: Spontaneous
  Country: US (occurrence: US)
  Receive Date: 20230124
  Receipt Date: 20230321
  Transmission Date: 20230418
  Serious: Yes (Other)
  Sender: FDA-Public Use
  Company Number: US-PFIZER INC-PV202300013737

PATIENT
  Age: 75 Year
  Sex: Female

DRUGS (4)
  1. MEKTOVI [Suspect]
     Active Substance: BINIMETINIB
     Indication: Malignant melanoma
     Dosage: 15 MG
  2. MEKTOVI [Suspect]
     Active Substance: BINIMETINIB
     Dosage: 45 MG
  3. BRAFTOVI [Suspect]
     Active Substance: ENCORAFENIB
     Indication: Malignant melanoma
     Dosage: 75 MG
  4. BRAFTOVI [Suspect]
     Active Substance: ENCORAFENIB
     Dosage: 450 MG

REACTIONS (6)
  - Second primary malignancy [Unknown]
  - Lung neoplasm malignant [Unknown]
  - Pneumonia [Unknown]
  - Neoplasm progression [Unknown]
  - Amnesia [Unknown]
  - Cough [Recovering/Resolving]

NARRATIVE: CASE EVENT DATE: 20230101
